FAERS Safety Report 4888790-5 (Version None)
Quarter: 2005Q4

REPORT INFORMATION
  Report Type: 
  Country: None (occurrence: None)
  Receive Date: 20051215
  Receipt Date: 20050713
  Transmission Date: 20060501
  Serious: Yes (Hospitalization, Other)
  Sender: FDA-Public Use
  Company Number: 2005103782

PATIENT
  Sex: Female

DRUGS (2)
  1. BEXTRA [Suspect]
     Indication: PAIN MANAGEMENT
     Dosage: (20 MG)
  2. MORPHINE [Suspect]
     Indication: SURGERY

REACTIONS (2)
  - DRUG INTERACTION [None]
  - HYPOTENSION [None]
